FAERS Safety Report 9547830 (Version 1)
Quarter: 2013Q3

REPORT INFORMATION
  Report Type: Spontaneous
  Country: US (occurrence: None)
  Receive Date: 20130719
  Receipt Date: 20130719
  Transmission Date: 20140515
  Serious: Yes (Other)
  Sender: FDA-Public Use
  Company Number: 2012BAX006086

PATIENT
  Age: 79 Year
  Sex: Female
  Weight: 71.84 kg

DRUGS (6)
  1. CYCLOPHOSPHAMIDE [Suspect]
     Indication: B-CELL LYMPHOMA
     Dosage: 69.7619 MG(1465 MG, CYCLIC) INTRAVENOUS (NOT OTHERWISE)
     Route: 042
     Dates: start: 20111219, end: 20120423
  2. VELCADE [Suspect]
     Indication: B-CELL LYMPHOMA
     Dosage: 0.2381 MG (2.5 MG, DAY 1 AND DAY 4 OF CYCLE), INTRAVENOUS(NOT OTHERWISE SPECIFIED)
     Dates: start: 20111219, end: 20120426
  3. RITUXIMAB [Suspect]
     Dosage: 34.7619 MG (730 MG, CYCLIC), INTRAVENOUS (NOT OTHERWISE SPECIFIED)
  4. DOXORUBICIN [Suspect]
     Indication: B-CELL LYMPHOMA
     Dosage: 4.6429 MG(97.5 MG, CYCLIC), INTRAVENOUS
     Dates: start: 20111219, end: 20120423
  5. VINCRISTINE [Suspect]
     Indication: B-CELL LYMPHOMA
     Dosage: 0.0952 MG (2 MG, CYCLIC), INTRAVENOUS(NOT OTHERWISE SPECIFIED)
     Route: 042
     Dates: start: 20111119, end: 20120423
  6. PREDNISONE [Suspect]
     Indication: B-CELL LYMPHOMA
     Dosage: 23.8095 MG (100 MG, DAYS 1-5 EVERY CYCLE),ORAL
     Route: 048
     Dates: start: 20111219, end: 20120427

REACTIONS (1)
  - White blood cell count decreased [None]
